FAERS Safety Report 5448324-3 (Version None)
Quarter: 2007Q3

REPORT INFORMATION
  Report Type: 
  Country: None (occurrence: None)
  Receive Date: 20070906
  Receipt Date: 20070723
  Transmission Date: 20080115
  Serious: Yes (Life-Threatening, Hospitalization, Other)
  Sender: FDA-Public Use
  Company Number: 2007US-09131

PATIENT
  Age: 30 Year
  Sex: Male

DRUGS (1)
  1. ISOPTIN SR [Suspect]
     Indication: DRUG USE FOR UNKNOWN INDICATION
     Dosage: 80 MG, 60 TABS IN 1 DOSE, ORAL
     Route: 048

REACTIONS (18)
  - ANURIA [None]
  - BRADYCARDIA [None]
  - CARDIOGENIC SHOCK [None]
  - DIABETIC KETOACIDOSIS [None]
  - DRUG TOXICITY [None]
  - GLASGOW COMA SCALE ABNORMAL [None]
  - HYPERGLYCAEMIA [None]
  - HYPOKALAEMIA [None]
  - HYPOPHOSPHATAEMIA [None]
  - HYPOTENSION [None]
  - INCONTINENCE [None]
  - INTENTIONAL OVERDOSE [None]
  - LETHARGY [None]
  - METABOLIC ACIDOSIS [None]
  - PULMONARY CONGESTION [None]
  - SEPSIS [None]
  - SOMNOLENCE [None]
  - TONGUE BITING [None]
